FAERS Safety Report 18706183 (Version 1)
Quarter: 2021Q1

REPORT INFORMATION
  Report Type: Spontaneous
  Country: IT (occurrence: IT)
  Receive Date: 20210106
  Receipt Date: 20210106
  Transmission Date: 20210419
  Serious: Yes (Other)
  Sender: FDA-Public Use
  Company Number: NVSC2021IT001807

PATIENT
  Age: 41 Year
  Sex: Female

DRUGS (5)
  1. OXALIPLATIN. [Suspect]
     Active Substance: OXALIPLATIN
     Indication: CYSTADENOCARCINOMA PANCREAS
     Dosage: 85 MG/M2
     Route: 065
     Dates: end: 202001
  2. LEUCOVORIN. [Suspect]
     Active Substance: LEUCOVORIN
     Indication: CYSTADENOCARCINOMA PANCREAS
     Dosage: 400 MG/M2
     Route: 065
     Dates: end: 202001
  3. FLUOROURACIL. [Suspect]
     Active Substance: FLUOROURACIL
     Dosage: 2400 MG/M2, Q2W (46?HOUR CONTINUOUS)
     Route: 041
     Dates: end: 202001
  4. IRINOTECAN [Suspect]
     Active Substance: IRINOTECAN
     Indication: CYSTADENOCARCINOMA PANCREAS
     Dosage: 180 MG/M2
     Route: 065
     Dates: end: 202001
  5. FLUOROURACIL. [Suspect]
     Active Substance: FLUOROURACIL
     Indication: CYSTADENOCARCINOMA PANCREAS
     Dosage: 400 MG/M2 (BOLUS)
     Route: 065

REACTIONS (4)
  - Therapy partial responder [Unknown]
  - Febrile neutropenia [Unknown]
  - Vomiting [Unknown]
  - Product use in unapproved indication [Unknown]
